FAERS Safety Report 4768022-9 (Version None)
Quarter: 2005Q3

REPORT INFORMATION
  Report Type: 
  Country: None (occurrence: None)
  Receive Date: 20050913
  Receipt Date: 20050826
  Transmission Date: 20060218
  Serious: Yes (Hospitalization)
  Sender: FDA-Public Use
  Company Number: 198850

PATIENT
  Age: 55 Year
  Sex: Male

DRUGS (2)
  1. AVONEX [Suspect]
     Indication: MULTIPLE SCLEROSIS
     Dosage: 30 UG;QW;IM
     Dates: start: 20031101, end: 20040301
  2. AVONEX [Suspect]
     Dosage: 30 UG;QW;IM
     Dates: start: 20040401

REACTIONS (2)
  - CELLULITIS [None]
  - NERVE COMPRESSION [None]
